FAERS Safety Report 9364223 (Version 1)
Quarter: 2013Q2

REPORT INFORMATION
  Report Type: Spontaneous
  Country: US (occurrence: US)
  Receive Date: 20130624
  Receipt Date: 20130624
  Transmission Date: 20140414
  Serious: Yes (Other)
  Sender: FDA-Public Use
  Company Number: US-PFIZER INC-2013113611

PATIENT
  Age: 66 Year
  Sex: Female
  Weight: 90.7 kg

DRUGS (14)
  1. LYRICA [Suspect]
     Indication: FIBROMYALGIA
     Dosage: 300 MG, 2X/DAY
     Route: 048
     Dates: start: 20121220, end: 201302
  2. LYRICA [Suspect]
     Indication: PAIN
     Dosage: 450 MG, 2X/DAY
     Route: 048
     Dates: start: 201302
  3. LYRICA [Suspect]
     Indication: MYOFASCIAL PAIN SYNDROME
     Dosage: 300 MG, 2X/DAY
     Route: 048
     Dates: start: 20130304
  4. HYDROCODONE [Suspect]
     Dosage: UNK
  5. FERROUS GLUCONATE [Concomitant]
     Indication: ANAEMIA
     Dosage: (324(38 FE) MG, 2X/DAY
     Route: 048
     Dates: start: 20130225
  6. ULTRAM [Concomitant]
     Dosage: 500 MG, 3X/DAY
     Route: 048
     Dates: start: 20121105
  7. ATORVASTATIN CALCIUM [Concomitant]
     Dosage: 20 MG, 1X/DAY (DAILY)
     Route: 048
     Dates: start: 20130123
  8. CITALOPRAM HYDROBROMIDE [Concomitant]
     Dosage: 40 MG, 1X/DAY
     Route: 048
     Dates: start: 20121203
  9. FLEXERIL [Concomitant]
     Dosage: 10 MG, EVERY EIGHT HOURS AS NEEDED
     Route: 048
     Dates: start: 20121026
  10. PROTONIX [Concomitant]
     Dosage: 40 MG, 1X/DAY
     Route: 048
     Dates: start: 20120921
  11. TRAZODONE HYDROCHLORIDE [Concomitant]
     Dosage: 150 MG, 1 TABLET AT BEDTIME
     Route: 048
     Dates: start: 20120515
  12. DOXEPIN HYDROCHLORIDE [Concomitant]
     Dosage: 75 MG, 1X/DAY (DAILY)
     Route: 048
     Dates: start: 20120515
  13. ADVAIR DISKUS [Concomitant]
     Dosage: 250-50MCG/ DOSE AERO POW BR ACT 1 INHALATION, 2X/DAY
     Dates: start: 20120327
  14. CYMBALTA [Concomitant]

REACTIONS (5)
  - Overdose [Unknown]
  - Drug abuse [Unknown]
  - Product quality issue [Unknown]
  - Essential tremor [Recovered/Resolved]
  - Feeling abnormal [Unknown]
